FAERS Safety Report 19185080 (Version 1)
Quarter: 2021Q2

REPORT INFORMATION
  Report Type: Report from Study
  Country: EG (occurrence: EG)
  Receive Date: 20210427
  Receipt Date: 20210427
  Transmission Date: 20210717
  Serious: Yes (Other)
  Sender: FDA-Public Use
  Company Number: NVSC2021EG084440

PATIENT
  Age: 44 Year
  Sex: Male

DRUGS (2)
  1. COSENTYX [Suspect]
     Active Substance: SECUKINUMAB
     Indication: PSORIASIS
     Dosage: 150 MG (2 PENS), QMO
     Route: 058
     Dates: start: 202006, end: 20200820
  2. DERMOVATE [Concomitant]
     Active Substance: CLOBETASOL
     Indication: PRODUCT USED FOR UNKNOWN INDICATION
     Dosage: UNK (DOSE AND REGIMEN ARE UNKNOWN BY THE REPORTER)
     Route: 065
     Dates: end: 202001

REACTIONS (4)
  - Posture abnormal [Recovered/Resolved]
  - Psoriasis [Not Recovered/Not Resolved]
  - Hypokinesia [Recovered/Resolved]
  - Product prescribing error [Recovered/Resolved]

NARRATIVE: CASE EVENT DATE: 202006
